FAERS Safety Report 8780287 (Version 1)
Quarter: 2012Q4

REPORT INFORMATION
  Report Type: Spontaneous
  Country: FR (occurrence: None)
  Receive Date: 20120829
  Receipt Date: 20120829
  Transmission Date: 20130627
  Serious: Yes (Hospitalization, Other)
  Sender: FDA-Public Use
  Company Number: 2012P1054484

PATIENT
  Age: 21 Year
  Sex: Male

DRUGS (2)
  1. METRONIDAZOLE [Suspect]
     Indication: BRAIN ABSCESS
     Route: 048
  2. CEFTRIAXONE [Concomitant]

REACTIONS (6)
  - Cerebellar syndrome [None]
  - VIth nerve paralysis [None]
  - Toxic encephalopathy [None]
  - Axonal neuropathy [None]
  - Peripheral sensory neuropathy [None]
  - Neurotoxicity [None]
